FAERS Safety Report 7367995-8 (Version None)
Quarter: 2011Q1

REPORT INFORMATION
  Report Type: 
  Country: None (occurrence: None)
  Receive Date: 20110322
  Receipt Date: 20090930
  Transmission Date: 20110831
  Serious: Yes (Death, Hospitalization, Other)
  Sender: FDA-Public Use
  Company Number: US-BAYER-200934890NA

PATIENT
  Sex: Male
  Weight: 73.923 kg

DRUGS (13)
  1. MANNITOL [Concomitant]
     Indication: PRODUCT USED FOR UNKNOWN INDICATION
     Dosage: 25 G, UNK
     Route: 042
     Dates: start: 20060617
  2. TRASYLOL [Suspect]
     Indication: CORONARY ARTERY BYPASS
     Dosage: 200 CC FOLLOWED BY CONTINUOUS INFUSION OF 50CC/HR
     Route: 042
     Dates: start: 20060617
  3. HEPARIN [Concomitant]
     Indication: PRODUCT USED FOR UNKNOWN INDICATION
     Dosage: 35000 U, UNK
     Route: 042
     Dates: start: 20060617
  4. PROTAMINE SULFATE [Concomitant]
     Indication: PRODUCT USED FOR UNKNOWN INDICATION
     Dosage: UNK
     Route: 042
     Dates: start: 20060617
  5. AMIODARONE HCL [Concomitant]
     Indication: PRODUCT USED FOR UNKNOWN INDICATION
     Dosage: 150MG LOADING DOSE
     Route: 042
     Dates: start: 20060617
  6. LIDOCAINE [Concomitant]
     Indication: PRODUCT USED FOR UNKNOWN INDICATION
     Dosage: 100 ML, UNK
     Route: 042
     Dates: start: 20060617
  7. ANCEF [Concomitant]
     Indication: PRODUCT USED FOR UNKNOWN INDICATION
     Dosage: 1 G, UNK
     Route: 042
     Dates: start: 20060617
  8. VERSED [Concomitant]
     Indication: PRODUCT USED FOR UNKNOWN INDICATION
     Dosage: UNK
     Route: 042
     Dates: start: 20060617
  9. INSULIN [Concomitant]
     Indication: PRODUCT USED FOR UNKNOWN INDICATION
     Dosage: 10 U, UNK
     Route: 042
     Dates: start: 20060617
  10. PRIMACOR [Concomitant]
     Indication: PRODUCT USED FOR UNKNOWN INDICATION
     Dosage: 3.75 ML, UNK
     Route: 042
     Dates: start: 20060617
  11. HEPARIN [Concomitant]
     Dosage: 4000 UNITS
     Dates: start: 20060617
  12. ALBUMIN (HUMAN) [Concomitant]
     Indication: PRODUCT USED FOR UNKNOWN INDICATION
     Dosage: 200 ML, UNK
     Route: 042
     Dates: start: 20060617
  13. MANNITOL [Concomitant]
     Dosage: 12.5 GRAMS
     Route: 042
     Dates: start: 20060617

REACTIONS (13)
  - EMOTIONAL DISTRESS [None]
  - RENAL FAILURE [None]
  - MULTI-ORGAN FAILURE [None]
  - STRESS [None]
  - PAIN [None]
  - DEATH [None]
  - ANXIETY [None]
  - FEAR [None]
  - INJURY [None]
  - RENAL IMPAIRMENT [None]
  - RENAL INJURY [None]
  - ANHEDONIA [None]
  - UNEVALUABLE EVENT [None]
